FAERS Safety Report 9296780 (Version 1)
Quarter: 2013Q2

REPORT INFORMATION
  Report Type: Spontaneous
  Country: US (occurrence: US)
  Receive Date: 20130517
  Receipt Date: 20130517
  Transmission Date: 20140414
  Serious: Yes (Other)
  Sender: FDA-Public Use
  Company Number: CHPA2013US008339

PATIENT
  Age: 63 Year
  Sex: Female

DRUGS (7)
  1. EXCEDRIN EXTRA STRENGTH [Suspect]
     Indication: MIGRAINE
     Dosage: 2 DF, PRN
     Route: 048
     Dates: start: 1973
  2. EXCEDRIN EXTRA STRENGTH [Suspect]
     Indication: HEADACHE
  3. EXCEDRIN EXTRA STRENGTH [Suspect]
     Indication: MUSCLE SPASMS
  4. EXCEDRIN EXTRA STRENGTH [Suspect]
     Indication: PAIN
  5. CENTRUM [Concomitant]
     Indication: SUPPLEMENTATION THERAPY
     Dosage: 2 DF, QD
     Route: 048
  6. CALCIUM [Concomitant]
     Indication: SUPPLEMENTATION THERAPY
     Dosage: 3780 MG, QD
     Route: 048
  7. VITAMIN A [Concomitant]
     Indication: VITAMIN SUPPLEMENTATION
     Dosage: 50000 IU, QD
     Route: 048

REACTIONS (5)
  - Diabetes mellitus [Recovering/Resolving]
  - Condition aggravated [Recovering/Resolving]
  - Diabetic neuropathy [Not Recovered/Not Resolved]
  - Hypertension [Recovered/Resolved]
  - Blood cholesterol increased [Recovered/Resolved]
